FAERS Safety Report 7091107-1 (Version None)
Quarter: 2010Q4

REPORT INFORMATION
  Report Type: 
  Country: None (occurrence: None)
  Receive Date: 20101105
  Receipt Date: 20101105
  Transmission Date: 20110411
  Serious: No
  Sender: FDA-Public Use
  Company Number: None

PATIENT
  Age: 53 Year
  Weight: 74.3899 kg

DRUGS (1)
  1. OXYCONTIN [Suspect]
     Indication: PAIN
     Dosage: 60 MG 2 PER DAY PO
     Route: 048
     Dates: start: 20070302, end: 20101103

REACTIONS (6)
  - DECREASED APPETITE [None]
  - DIZZINESS [None]
  - HEADACHE [None]
  - INFLUENZA [None]
  - NAUSEA [None]
  - PRODUCT FORMULATION ISSUE [None]
